FAERS Safety Report 22233497 (Version 1)
Quarter: 2023Q2

REPORT INFORMATION
  Report Type: Spontaneous
  Country: US (occurrence: None)
  Receive Date: 20230420
  Receipt Date: 20230420
  Transmission Date: 20230722
  Serious: No
  Sender: FDA-Public Use
  Company Number: US-ROCHE-3088636

PATIENT
  Sex: Female

DRUGS (9)
  1. ESBRIET [Suspect]
     Active Substance: PIRFENIDONE
     Indication: Idiopathic pulmonary fibrosis
     Dosage: 3 CAPSULES
     Route: 048
  2. MYRBETRIQ [Concomitant]
     Active Substance: MIRABEGRON
  3. AMLODIPINE [Concomitant]
     Active Substance: AMLODIPINE BESYLATE
  4. MORPHINE [Concomitant]
     Active Substance: MORPHINE
  5. OXYCODONE [Concomitant]
     Active Substance: OXYCODONE
  6. PRAVASTATIN [Concomitant]
     Active Substance: PRAVASTATIN
  7. PREGABALIN [Concomitant]
     Active Substance: PREGABALIN
  8. FISH OIL [Concomitant]
     Active Substance: FISH OIL
  9. VITAMIN D3 [Concomitant]
     Active Substance: CHOLECALCIFEROL

REACTIONS (2)
  - Fatigue [Unknown]
  - Somnolence [Unknown]
